FAERS Safety Report 9548177 (Version 1)
Quarter: 2013Q2

REPORT INFORMATION
  Report Type: Spontaneous
  Country: US (occurrence: None)
  Receive Date: 20130627
  Receipt Date: 20130627
  Transmission Date: 20140414
  Serious: No
  Sender: FDA-Public Use
  Company Number: 1000045002

PATIENT
  Age: 73 Year
  Sex: Female

DRUGS (9)
  1. LINZESS (LINACLOTIDE) (145 MICROGRAM, CAPSULES) [Suspect]
     Indication: CONSTIPATION
     Route: 048
     Dates: start: 20130312
  2. HYDROCODONE (HYDROCODONE) [Concomitant]
  3. DEXILANT (DEXLANSOPRAZOLE) (DEXLANSOPRAZOLE) [Concomitant]
  4. LISINOPRIL (LISINOPRIL) [Concomitant]
  5. ACTONEL (RISEDRONATE SODIUM) (RISEDRONATE SODIUM) [Concomitant]
  6. CLARITIN (LORATADINE) (LORATADINE) [Concomitant]
  7. TRAZODONE (TRAZODONE) [Concomitant]
  8. XANAX [Concomitant]
  9. ZOLOFT (SERTRALINE HYDROCHLORIDE) (SERTRALINE HYDROCHLORIDE) [Concomitant]

REACTIONS (1)
  - Hypoaesthesia [None]
